FAERS Safety Report 6127861-2 (Version None)
Quarter: 2009Q1

REPORT INFORMATION
  Report Type: 
  Country: None (occurrence: None)
  Receive Date: 20090323
  Receipt Date: 20090310
  Transmission Date: 20090719
  Serious: Yes (Hospitalization, Other)
  Sender: FDA-Public Use
  Company Number: US-ELI_LILLY_AND_COMPANY-US200903002462

PATIENT
  Sex: Female

DRUGS (1)
  1. FORTEO [Suspect]
     Indication: OSTEOPOROSIS
     Dates: start: 20090225, end: 20090306

REACTIONS (5)
  - COUGH [None]
  - DYSPNOEA [None]
  - ILL-DEFINED DISORDER [None]
  - PAIN [None]
  - SPLENIC INJURY [None]
